FAERS Safety Report 7457305-X (Version None)
Quarter: 2011Q1

REPORT INFORMATION
  Report Type: 
  Country: None (occurrence: None)
  Receive Date: 20110302
  Receipt Date: 20101210
  Transmission Date: 20110831
  Serious: No
  Sender: FDA-Public Use
  Company Number: 023657

PATIENT
  Sex: Female
  Weight: 152 kg

DRUGS (4)
  1. BUDESONIDE [Suspect]
  2. ZOFRAN [Suspect]
  3. CIMZIA [Suspect]
     Indication: CROHN'S DISEASE
     Dosage: (200 MG 1X/2 WEEKS, INDUCTION DOSE SUBCUTANEOUS)
     Route: 058
     Dates: start: 20101110, end: 20101130
  4. PERCOCET [Suspect]
     Indication: CROHN'S DISEASE

REACTIONS (5)
  - NAUSEA [None]
  - DIARRHOEA [None]
  - VOMITING [None]
  - ABDOMINAL PAIN [None]
  - FATIGUE [None]
